FAERS Safety Report 7462758-7 (Version None)
Quarter: 2011Q2

REPORT INFORMATION
  Report Type: 
  Country: None (occurrence: None)
  Receive Date: 20110506
  Receipt Date: 20110422
  Transmission Date: 20111010
  Serious: Yes (Hospitalization, Other)
  Sender: FDA-Public Use
  Company Number: US-CELGENEUS-163-21880-11040651

PATIENT
  Sex: Male
  Weight: 78.224 kg

DRUGS (25)
  1. IRON [Concomitant]
     Dosage: 50 MILLIGRAM
     Route: 048
     Dates: start: 20060101
  2. VALIUM [Concomitant]
     Indication: ANXIETY
     Dosage: 5 MILLIGRAM
     Route: 048
  3. WHOLE BLOOD [Concomitant]
     Dosage: 2 UNITS
     Route: 051
     Dates: start: 20110401
  4. MULTI-VITAMINS [Concomitant]
     Dosage: 1 TABLET
     Route: 048
  5. SPIRONOLACTONE [Concomitant]
     Indication: HYPERTENSION
     Dosage: 25 MILLIGRAM
     Route: 048
     Dates: start: 20080301
  6. NORMAL SALINE [Concomitant]
     Dosage: 2 LITERS
     Route: 065
     Dates: start: 20110401
  7. AMLODIPINE BESYLATE [Concomitant]
     Indication: HYPERTENSION
     Dosage: 5 MILLIGRAM
     Route: 048
  8. ASPIRIN [Concomitant]
     Indication: ANTICOAGULANT THERAPY
     Dosage: 81 MILLIGRAM
     Route: 048
     Dates: start: 20071023
  9. AZITHROMYCIN [Concomitant]
     Dosage: 250 MILLIGRAM
     Route: 048
     Dates: start: 20081006
  10. VICODIN [Concomitant]
     Indication: PAIN
     Dosage: 1 TABLET
     Route: 048
     Dates: start: 20110128
  11. CALCIUM CARBONATE [Concomitant]
     Dosage: 500 MILLIGRAM
     Route: 048
     Dates: start: 20020101
  12. LOVENOX [Concomitant]
     Dosage: 40/0.4MG/ML
     Route: 058
     Dates: start: 20110108
  13. DEXAMETHASONE [Suspect]
     Indication: MULTIPLE MYELOMA
     Dosage: 40 MILLIGRAM
     Route: 065
     Dates: start: 20110111
  14. CARVEDILOL [Concomitant]
     Indication: HYPERTENSION
     Dosage: 6.5 MILLIGRAM
     Route: 048
     Dates: start: 20090301
  15. FENTANYL [Concomitant]
     Indication: PAIN
     Route: 062
     Dates: start: 20110128
  16. REVLIMID [Suspect]
     Indication: MULTIPLE MYELOMA
     Dosage: 25 MILLIGRAM
     Route: 048
     Dates: start: 20110111
  17. PREVACID [Concomitant]
     Dosage: 15 MILLIGRAM
     Route: 048
     Dates: start: 20110110
  18. DIURETICS [Concomitant]
     Route: 051
     Dates: start: 20110402
  19. CARDURA [Concomitant]
     Dosage: 2 MILLIGRAM
     Route: 048
     Dates: start: 20080101
  20. FOLIC ACID [Concomitant]
     Route: 048
     Dates: start: 20020101
  21. PAMIDRONATE DISODIUM [Concomitant]
     Dosage: 90 MILLIGRAM
     Route: 051
     Dates: start: 20110103
  22. LASIX [Concomitant]
     Dosage: 20 MILLIGRAM
     Route: 065
     Dates: start: 20110401
  23. ACYCLOVIR [Concomitant]
     Indication: ANTIVIRAL PROPHYLAXIS
     Dosage: 400 MILLIGRAM
     Route: 048
     Dates: start: 20051026
  24. MYCELEX [Concomitant]
     Indication: PROPHYLAXIS
     Dosage: 1 TABLET
     Route: 048
     Dates: start: 20101229
  25. SENOKOT [Concomitant]
     Indication: CONSTIPATION
     Dosage: 2 TABLET
     Route: 048
     Dates: start: 20030101

REACTIONS (3)
  - PERICARDIAL EFFUSION [None]
  - PLEURAL EFFUSION [None]
  - PNEUMONIA RESPIRATORY SYNCYTIAL VIRAL [None]
